FAERS Safety Report 17714152 (Version 4)
Quarter: 2020Q2

REPORT INFORMATION
  Report Type: Spontaneous
  Country: US (occurrence: US)
  Receive Date: 20200427
  Receipt Date: 20200604
  Transmission Date: 20200714
  Serious: Yes (Other)
  Sender: FDA-Public Use
  Company Number: US-ACTELION-A-NJ2020-204511

PATIENT
  Age: 3 Year
  Sex: Male

DRUGS (4)
  1. METHADONE [Suspect]
     Active Substance: METHADONE HYDROCHLORIDE
     Indication: PRODUCT USED FOR UNKNOWN INDICATION
     Route: 065
  2. MELATONIN [Concomitant]
     Active Substance: MELATONIN
  3. TRACLEER [Suspect]
     Active Substance: BOSENTAN
     Indication: PRODUCT USED FOR UNKNOWN INDICATION
     Dosage: 32 MG (4X14)
     Route: 048
     Dates: start: 202003
  4. TRACLEER [Suspect]
     Active Substance: BOSENTAN
     Dosage: 32 MG, BID

REACTIONS (4)
  - Gastrointestinal tube insertion [Recovered/Resolved]
  - Device occlusion [Recovered/Resolved]
  - Insomnia [Recovering/Resolving]
  - Vomiting [Recovered/Resolved]

NARRATIVE: CASE EVENT DATE: 20200511
